FAERS Safety Report 4312554-4 (Version None)
Quarter: 2004Q1

REPORT INFORMATION
  Report Type: 
  Country: None (occurrence: None)
  Receive Date: 20040302
  Receipt Date: 20031230
  Transmission Date: 20041129
  Serious: No
  Sender: FDA-Public Use
  Company Number: 200331100BWH

PATIENT
  Sex: Male

DRUGS (15)
  1. LEVITRA [Suspect]
     Indication: ERECTILE DYSFUNCTION
     Dosage: 10 MG OW ORAL, 20 MG OW ORAL
     Route: 048
     Dates: start: 20031001, end: 20031201
  2. LEVITRA [Suspect]
     Indication: ERECTILE DYSFUNCTION
     Dosage: 10 MG OW ORAL, 20 MG OW ORAL
     Route: 048
     Dates: start: 20040101
  3. VIAGRA [Concomitant]
  4. CIALIS [Concomitant]
  5. COUMADIN [Concomitant]
  6. CELEBREX [Concomitant]
  7. PERIOSTAT [Concomitant]
  8. NIACIN [Concomitant]
  9. SAW PALMETTO [Concomitant]
  10. MULTI-VITAMIN [Concomitant]
  11. FISH OIL [Concomitant]
  12. VITAMIN B6 [Concomitant]
  13. COENZYME Q10 [Concomitant]
  14. VITAMIN C [Concomitant]
  15. B12 [Concomitant]

REACTIONS (2)
  - ERECTILE DYSFUNCTION [None]
  - THERAPEUTIC RESPONSE DELAYED [None]
